FAERS Safety Report 6504038-X (Version None)
Quarter: 2009Q4

REPORT INFORMATION
  Report Type: 
  Country: None (occurrence: None)
  Receive Date: 20091216
  Receipt Date: 20091216
  Transmission Date: 20100525
  Serious: Yes (Death)
  Sender: FDA-Public Use
  Company Number: None

PATIENT
  Sex: Male

DRUGS (2)
  1. MYCOPHENOLATE MOFETIL [Suspect]
     Dosage: 2 CAPS TWICE A DAY BY MOUTH LAST FILLED ON 09/23/09
     Route: 048
  2. PROGRAF [Suspect]
     Dosage: 4 CAPS TWICE A DAY BY MOUTH LAST FILLED ON 09/09/09
     Route: 048

REACTIONS (1)
  - DEATH [None]
